FAERS Safety Report 11740962 (Version 1)
Quarter: 2015Q4

REPORT INFORMATION
  Report Type: Spontaneous
  Country: VE (occurrence: VE)
  Receive Date: 20151115
  Receipt Date: 20151115
  Transmission Date: 20160304
  Serious: Yes (Hospitalization)
  Sender: FDA-Public Use
  Company Number: PHHY2015VE147900

PATIENT
  Sex: Male
  Weight: 14 kg

DRUGS (2)
  1. TRILEPTAL [Suspect]
     Active Substance: OXCARBAZEPINE
     Indication: PARTIAL SEIZURES
     Dosage: 3 CM3, QD
     Route: 048
     Dates: start: 20151102
  2. TRILEPTAL [Suspect]
     Active Substance: OXCARBAZEPINE
     Indication: COGNITIVE DISORDER

REACTIONS (3)
  - Seizure [Recovered/Resolved]
  - Skin discolouration [Recovered/Resolved]
  - Vomiting [Recovered/Resolved]

NARRATIVE: CASE EVENT DATE: 20151102
